FAERS Safety Report 5837966-9 (Version None)
Quarter: 2008Q3

REPORT INFORMATION
  Report Type: 
  Country: None (occurrence: None)
  Receive Date: 20080808
  Receipt Date: 20071228
  Transmission Date: 20090109
  Serious: No
  Sender: FDA-Public Use
  Company Number: A0700770A

PATIENT
  Age: 75 Year
  Sex: Female

DRUGS (3)
  1. PAROXETINE HCL [Suspect]
     Indication: SUICIDAL IDEATION
     Route: 048
     Dates: start: 20050101
  2. PAXIL [Suspect]
     Indication: SUICIDAL IDEATION
     Dosage: 25MG PER DAY
     Route: 048
  3. BENICAR [Concomitant]

REACTIONS (1)
  - DRUG INEFFECTIVE [None]
